FAERS Safety Report 4866306-7 (Version None)
Quarter: 2005Q4

REPORT INFORMATION
  Report Type: 
  Country: None (occurrence: None)
  Receive Date: 20051221
  Receipt Date: 20051215
  Transmission Date: 20060501
  Serious: Yes (Hospitalization, Other)
  Sender: FDA-Public Use
  Company Number: 2005168925

PATIENT
  Sex: Male
  Weight: 72.5755 kg

DRUGS (6)
  1. CELEBREX [Suspect]
     Indication: OSTEOARTHRITIS
     Dates: end: 20051214
  2. ACCUPRIL [Suspect]
     Indication: DIABETES MELLITUS
  3. NEXIUM [Concomitant]
  4. VITAMIN B12 [Concomitant]
  5. MULTIVITAMIN [Concomitant]
  6. VITAMIN B6 (VITAMIN B6) [Concomitant]

REACTIONS (12)
  - AORTIC VALVE REPLACEMENT [None]
  - BALANCE DISORDER [None]
  - BLOOD GLUCOSE DECREASED [None]
  - BODY HEIGHT DECREASED [None]
  - COORDINATION ABNORMAL [None]
  - CORONARY ARTERY SURGERY [None]
  - DIABETES MELLITUS NON-INSULIN-DEPENDENT [None]
  - FALL [None]
  - HEAD INJURY [None]
  - RENAL FAILURE [None]
  - SUBDURAL HAEMATOMA [None]
  - TRANSIENT ISCHAEMIC ATTACK [None]
